FAERS Safety Report 25251553 (Version 1)
Quarter: 2025Q2

REPORT INFORMATION
  Report Type: Spontaneous
  Country: CO (occurrence: CO)
  Receive Date: 20250429
  Receipt Date: 20250429
  Transmission Date: 20250717
  Serious: Yes (Hospitalization, Other)
  Sender: BAYER HEALTHCARE PHARMACEUTICALS INC.
  Company Number: CO-BAYER-2025A058073

PATIENT
  Age: 70 Year
  Sex: Male

DRUGS (1)
  1. DAROLUTAMIDE [Suspect]
     Active Substance: DAROLUTAMIDE
     Indication: Hormone-refractory prostate cancer
     Dosage: 600 MG, BID
     Dates: start: 2024

REACTIONS (9)
  - Nausea [Not Recovered/Not Resolved]
  - Haematuria [Not Recovered/Not Resolved]
  - Back pain [Not Recovered/Not Resolved]
  - Asthenia [Not Recovered/Not Resolved]
  - Acute kidney injury [None]
  - Hydronephrosis [None]
  - Prostate cancer recurrent [Not Recovered/Not Resolved]
  - Pelvic mass [None]
  - Treatment failure [None]

NARRATIVE: CASE EVENT DATE: 20250301
